FAERS Safety Report 9938383 (Version 2)
Quarter: 2014Q1

REPORT INFORMATION
  Report Type: Report from Study
  Country: US (occurrence: US)
  Receive Date: 20140303
  Receipt Date: 20140303
  Transmission Date: 20141002
  Serious: Yes (Hospitalization)
  Sender: FDA-Public Use
  Company Number: US-ABBVIE-12P-163-1001871-00

PATIENT
  Age: 38 Year
  Sex: Male

DRUGS (2)
  1. HUMIRA [Suspect]
     Indication: PSORIASIS
     Dates: start: 20120618, end: 20121031
  2. XANAX [Concomitant]
     Indication: ANXIETY

REACTIONS (2)
  - Cellulitis [Recovered/Resolved]
  - Foreign body [Recovered/Resolved]
